FAERS Safety Report 22947545 (Version 6)
Quarter: 2023Q4

REPORT INFORMATION
  Report Type: Report from Study
  Country: PL (occurrence: None)
  Receive Date: 20230915
  Receipt Date: 20231122
  Transmission Date: 20240110
  Serious: Yes (Hospitalization)
  Sender: FDA-Public Use
  Company Number: PL-ROCHE-3385272

PATIENT
  Age: 58 Year
  Sex: Female

DRUGS (32)
  1. OCRELIZUMAB [Suspect]
     Active Substance: OCRELIZUMAB
     Indication: Multiple sclerosis
     Route: 042
     Dates: start: 20230629
  2. TAMSULOSIN HYDROCHLORIDE [Concomitant]
     Active Substance: TAMSULOSIN HYDROCHLORIDE
     Indication: Neurogenic bladder
     Route: 048
     Dates: start: 20221007
  3. DISTIGMINE BROMIDE [Concomitant]
     Active Substance: DISTIGMINE BROMIDE
     Indication: Neurogenic bladder
     Route: 048
     Dates: start: 20130919
  4. BACLOFEN [Concomitant]
     Active Substance: BACLOFEN
     Route: 048
     Dates: start: 202208
  5. PREGABALIN [Concomitant]
     Active Substance: PREGABALIN
     Indication: Neuralgia
     Route: 048
     Dates: start: 202208
  6. ESTAZOLAM [Concomitant]
     Active Substance: ESTAZOLAM
     Indication: Insomnia
     Route: 048
     Dates: start: 202208
  7. IBANDRONATE SODIUM [Concomitant]
     Active Substance: IBANDRONATE SODIUM
     Route: 048
     Dates: start: 20140807
  8. NAPROXEN [Concomitant]
     Active Substance: NAPROXEN
     Route: 048
     Dates: start: 20190710
  9. BETAHISTINE [Concomitant]
     Active Substance: BETAHISTINE
     Route: 048
     Dates: start: 202212
  10. ACETAMINOPHEN [Concomitant]
     Active Substance: ACETAMINOPHEN
     Route: 048
     Dates: start: 20230629, end: 20230629
  11. CETIRIZINE HYDROCHLORIDE [Concomitant]
     Active Substance: CETIRIZINE HYDROCHLORIDE
     Route: 048
     Dates: start: 20230629, end: 20230629
  12. CELECOXIB [Concomitant]
     Active Substance: CELECOXIB
     Indication: Osteoarthritis
     Dosage: MEDICATION DOSE : 1 TABLET
     Route: 048
     Dates: start: 20230608
  13. ACARD [Concomitant]
     Route: 048
     Dates: start: 20230713
  14. FERROUS GLUCONATE [Concomitant]
     Active Substance: FERROUS GLUCONATE
     Indication: Neurogenic bladder
     Route: 048
     Dates: start: 20230713
  15. CITRONIL [Concomitant]
     Indication: Depression
     Route: 048
     Dates: start: 20230713
  16. ENOXAPARIN SODIUM [Concomitant]
     Active Substance: ENOXAPARIN SODIUM
     Dosage: 1 AMPULE
     Route: 058
     Dates: start: 20230713, end: 20230731
  17. ETHAMSYLATE [Concomitant]
     Active Substance: ETHAMSYLATE
     Route: 048
     Dates: start: 20230731, end: 20230810
  18. ENTEROL (POLAND) [Concomitant]
     Route: 048
     Dates: start: 20230713
  19. HEPAREGEN [Concomitant]
     Route: 048
     Dates: start: 20230713, end: 20230731
  20. HYDROXYZINE HYDROCHLORIDE [Concomitant]
     Active Substance: HYDROXYZINE HYDROCHLORIDE
     Indication: Insomnia
     Route: 048
     Dates: start: 20230713, end: 20230731
  21. IVABRADINE [Concomitant]
     Active Substance: IVABRADINE
     Indication: Arrhythmia
     Route: 048
     Dates: start: 20230713
  22. IVABRADINE [Concomitant]
     Active Substance: IVABRADINE
     Indication: Tachycardia
  23. POTASSIUM CHLORIDE [Concomitant]
     Active Substance: POTASSIUM CHLORIDE
     Route: 048
     Dates: start: 20230713
  24. DIMETHICONE [Concomitant]
     Active Substance: DIMETHICONE
     Indication: Gastritis
     Route: 048
     Dates: start: 20230713
  25. DIMETHICONE [Concomitant]
     Active Substance: DIMETHICONE
     Indication: Duodenitis
  26. LACTULOSUM [Concomitant]
     Indication: Gastritis
     Route: 048
     Dates: start: 20230713, end: 20230731
  27. LACTULOSUM [Concomitant]
     Indication: Duodenitis
  28. PROKIT [Concomitant]
     Indication: Gastritis
     Route: 048
     Dates: start: 20230713
  29. PROKIT [Concomitant]
     Indication: Duodenitis
  30. IPP (POLAND) [Concomitant]
     Indication: Gastritis
     Route: 048
     Dates: start: 20230713
  31. IPP (POLAND) [Concomitant]
     Indication: Duodenitis
  32. SOLU-MEDROL [Concomitant]
     Active Substance: METHYLPREDNISOLONE SODIUM SUCCINATE
     Route: 042
     Dates: start: 20230629, end: 20230629

REACTIONS (2)
  - Urinary tract infection [Recovered/Resolved]
  - Pneumonia [Recovered/Resolved]

NARRATIVE: CASE EVENT DATE: 20230713
